FAERS Safety Report 5415951-9 (Version None)
Quarter: 2007Q3

REPORT INFORMATION
  Report Type: 
  Country: None (occurrence: None)
  Receive Date: 20070815
  Receipt Date: 20070803
  Transmission Date: 20080115
  Serious: Yes (Other)
  Sender: FDA-Public Use
  Company Number: AR-PFIZER INC-2007065557

PATIENT

DRUGS (1)
  1. CABERGOLINE [Suspect]

REACTIONS (1)
  - CONGENITAL ANOMALY [None]
